FAERS Safety Report 17171525 (Version 2)
Quarter: 2019Q4

REPORT INFORMATION
  Report Type: Report from Study
  Country: None (occurrence: JP)
  Receive Date: 20191218
  Receipt Date: 20191230
  Transmission Date: 20200122
  Serious: Yes (Hospitalization)
  Sender: FDA-Public Use
  Company Number: JP-ABBVIE-19P-087-3189371-00

PATIENT
  Age: 70 Year
  Sex: Male
  Weight: 59 kg

DRUGS (26)
  1. VENETOCLAX. [Suspect]
     Active Substance: VENETOCLAX
     Route: 048
     Dates: start: 20180105, end: 20180111
  2. VENETOCLAX. [Suspect]
     Active Substance: VENETOCLAX
     Route: 048
     Dates: start: 20180130, end: 20190622
  3. BISOPROLOL FUMARATE. [Concomitant]
     Active Substance: BISOPROLOL FUMARATE
     Indication: ATRIAL FIBRILLATION
     Route: 048
     Dates: start: 20180116
  4. VENETOCLAX. [Suspect]
     Active Substance: VENETOCLAX
     Indication: PLASMA CELL MYELOMA
     Route: 048
     Dates: start: 20171031, end: 20171226
  5. MAGNESIUM OXIDE. [Concomitant]
     Active Substance: MAGNESIUM OXIDE
     Indication: CONSTIPATION
     Route: 048
     Dates: start: 20171110
  6. ITRACONAZOLE. [Concomitant]
     Active Substance: ITRACONAZOLE
     Indication: PNEUMONIA
     Route: 048
     Dates: start: 20190702, end: 20190709
  7. AMLODIPINE [Concomitant]
     Active Substance: AMLODIPINE BESYLATE
     Indication: HYPERTENSION
     Route: 048
     Dates: start: 20180213, end: 20190521
  8. UNASYN [Concomitant]
     Active Substance: AMPICILLIN SODIUM\SULBACTAM SODIUM
     Indication: ANTIBIOTIC PROPHYLAXIS
     Route: 048
     Dates: start: 20190709, end: 20191224
  9. BORTEZOMIB. [Suspect]
     Active Substance: BORTEZOMIB
     Dosage: CYCLE 9 AND BEYOND: ON DAYS 1, 8, 15 AND 22 OF 35 DAY CYCLE
     Route: 058
     Dates: start: 20180220, end: 20191126
  10. DEXAMETHASONE. [Suspect]
     Active Substance: DEXAMETHASONE
     Dosage: CYCLE 9 AND BEYOND: ON DAYS 1, 2, 8, 9, 15, 16, 22 AND 23 OF 35 DAY CYCLE
     Route: 048
     Dates: start: 20190723, end: 20191127
  11. AMLODIPINE [Concomitant]
     Active Substance: AMLODIPINE BESYLATE
     Route: 048
     Dates: start: 20171024, end: 20180112
  12. UNASYN [Concomitant]
     Active Substance: AMPICILLIN SODIUM\SULBACTAM SODIUM
     Route: 048
     Dates: start: 20190427, end: 20190503
  13. BORTEZOMIB. [Suspect]
     Active Substance: BORTEZOMIB
     Indication: PLASMA CELL MYELOMA
     Dosage: 1-8: ON DAYS 1, 4, 8 AND 11 OF 21 DAY CYCLE
     Route: 058
     Dates: start: 20171031, end: 20180109
  14. SENNOSIDE A/B CALCIUM [Concomitant]
     Indication: CONSTIPATION
     Dosage: DOSAGE IS 12-24 MG
     Route: 048
     Dates: start: 20171107
  15. VALACICLOVIR [Concomitant]
     Active Substance: VALACYCLOVIR HYDROCHLORIDE
     Indication: ANTIVIRAL PROPHYLAXIS
     Route: 048
     Dates: start: 20171030, end: 20191224
  16. AMLODIPINE [Concomitant]
     Active Substance: AMLODIPINE BESYLATE
     Route: 048
     Dates: start: 20191112
  17. UNASYN [Concomitant]
     Active Substance: AMPICILLIN SODIUM\SULBACTAM SODIUM
     Indication: PNEUMONIA
     Route: 048
     Dates: start: 20190702, end: 20190708
  18. BORTEZOMIB. [Suspect]
     Active Substance: BORTEZOMIB
     Dosage: CYCLE 9 AND BEYOND: ON DAYS 1, 8, 15 AND 22 OF 35 DAY CYCLE
     Route: 058
     Dates: start: 20180130, end: 20180209
  19. DEXAMETHASONE. [Suspect]
     Active Substance: DEXAMETHASONE
     Dosage: CYCLE 9 AND BEYOND: ON DAYS 1, 2, 8, 9, 15, 16, 22 AND 23 OF 35 DAY CYCLE
     Route: 048
     Dates: start: 20190129, end: 20190619
  20. DAIPHEN GRANULES [Concomitant]
     Indication: ANTIBIOTIC PROPHYLAXIS
     Route: 048
     Dates: start: 20190419, end: 20191224
  21. ITRACONAZOLE. [Concomitant]
     Active Substance: ITRACONAZOLE
     Indication: ANTIBIOTIC PROPHYLAXIS
     Route: 048
     Dates: start: 20190709, end: 20191224
  22. VENETOCLAX. [Suspect]
     Active Substance: VENETOCLAX
     Route: 048
     Dates: start: 20190712, end: 20191209
  23. DEXAMETHASONE. [Suspect]
     Active Substance: DEXAMETHASONE
     Indication: PLASMA CELL MYELOMA
     Dosage: 1-8: ON DAYS 1, 2, 4, 5, 8, 9, 11 AND 12 OF 21 DAY CYCLE.
     Route: 048
     Dates: start: 20171031, end: 20181212
  24. REBAMIPIDE [Concomitant]
     Active Substance: REBAMIPIDE
     Indication: GASTRITIS PROPHYLAXIS
     Route: 048
     Dates: start: 20170328
  25. ETIZOLAM [Concomitant]
     Active Substance: ETIZOLAM
     Indication: INSOMNIA
     Route: 048
     Dates: start: 20170310
  26. EDOXABAN TOSILATE HYDRATE [Concomitant]
     Active Substance: EDOXABAN TOSYLATE
     Indication: ATRIAL FIBRILLATION
     Route: 048
     Dates: start: 20180116

REACTIONS (1)
  - Pneumonia [Recovered/Resolved]

NARRATIVE: CASE EVENT DATE: 20191210
